FAERS Safety Report 20315229 (Version 1)
Quarter: 2022Q1

REPORT INFORMATION
  Report Type: Spontaneous
  Country: US (occurrence: None)
  Receive Date: 20220110
  Receipt Date: 20220110
  Transmission Date: 20220424
  Serious: No
  Sender: FDA-Public Use
  Company Number: US-ROCHE-2796082

PATIENT
  Sex: Female
  Weight: 49.486 kg

DRUGS (3)
  1. RITUXAN [Suspect]
     Active Substance: RITUXIMAB
     Indication: Rheumatoid arthritis
     Dosage: ONCE A WEEK X 4 WEEKS Q4-6 MONTHS
     Route: 042
     Dates: start: 2008
  2. RITUXAN [Suspect]
     Active Substance: RITUXIMAB
     Indication: Myasthenia gravis
  3. CLINORIL [Concomitant]
     Active Substance: SULINDAC
     Indication: Rheumatoid arthritis
     Route: 048

REACTIONS (2)
  - Off label use [Unknown]
  - No adverse event [Unknown]
